FAERS Safety Report 11636302 (Version 1)
Quarter: 2015Q4

REPORT INFORMATION
  Report Type: Spontaneous
  Country: US (occurrence: US)
  Receive Date: 20151016
  Receipt Date: 20151016
  Transmission Date: 20160304
  Serious: No
  Sender: FDA-Public Use
  Company Number: US-BAYER-2015-445258

PATIENT
  Age: 74 Year
  Sex: Female
  Weight: 76.19 kg

DRUGS (2)
  1. CARBACHOL [Concomitant]
     Active Substance: CARBACHOL
  2. MIRALAX [Suspect]
     Active Substance: POLYETHYLENE GLYCOL 3350
     Dosage: 1 DF, QD WITH 8-12 OUNCES OF WATER
     Route: 048
     Dates: start: 201507

REACTIONS (2)
  - Wrong technique in product usage process [None]
  - Product use issue [None]
